FAERS Safety Report 6092737-6 (Version None)
Quarter: 2009Q1

REPORT INFORMATION
  Report Type: 
  Country: None (occurrence: None)
  Receive Date: 20090225
  Receipt Date: 20090219
  Transmission Date: 20090719
  Serious: Yes (Hospitalization, Other)
  Sender: FDA-Public Use
  Company Number: US-ABBOTT-09P-163-0558188-00

PATIENT
  Sex: Male
  Weight: 69.462 kg

DRUGS (10)
  1. HUMIRA [Suspect]
     Indication: RHEUMATOID ARTHRITIS
     Route: 058
     Dates: start: 20080204, end: 20090116
  2. METHOTREXATE [Concomitant]
     Indication: RHEUMATOID ARTHRITIS
  3. ASPIRIN [Concomitant]
     Indication: CARDIAC DISORDER
  4. THYROXINE [Concomitant]
     Indication: HYPOTHYROIDISM
  5. METOPROLOL [Concomitant]
     Indication: HYPERTENSION
  6. DIGOXIN [Concomitant]
     Indication: CARDIAC DISORDER
  7. COZAAR [Concomitant]
     Indication: CARDIAC DISORDER
  8. FOLIC ACID [Concomitant]
     Indication: RHEUMATOID ARTHRITIS
  9. REPLIVA [Concomitant]
     Indication: ANAEMIA
  10. WARFARIN [Concomitant]
     Indication: ANTICOAGULANT THERAPY

REACTIONS (6)
  - ASTHENIA [None]
  - COLON CANCER [None]
  - DIZZINESS [None]
  - INTESTINAL OBSTRUCTION [None]
  - RECTAL HAEMORRHAGE [None]
  - TOOTH INFECTION [None]
